FAERS Safety Report 22076848 (Version 1)
Quarter: 2023Q1

REPORT INFORMATION
  Report Type: Spontaneous
  Country: US (occurrence: US)
  Receive Date: 20230309
  Receipt Date: 20230309
  Transmission Date: 20230417
  Serious: No
  Sender: FDA-Public Use
  Company Number: US-BIOGEN-2023BI01191762

PATIENT
  Sex: Female

DRUGS (3)
  1. TYSABRI [Suspect]
     Active Substance: NATALIZUMAB
     Indication: Multiple sclerosis
     Route: 050
     Dates: start: 20170203
  2. TYSABRI [Suspect]
     Active Substance: NATALIZUMAB
     Route: 050
  3. TYSABRI [Suspect]
     Active Substance: NATALIZUMAB
     Route: 050

REACTIONS (5)
  - Prescribed underdose [Recovered/Resolved]
  - Joint contracture [Not Recovered/Not Resolved]
  - Vision blurred [Not Recovered/Not Resolved]
  - Hemiparesis [Not Recovered/Not Resolved]
  - Somnolence [Not Recovered/Not Resolved]
